FAERS Safety Report 21533412 (Version 4)
Quarter: 2023Q1

REPORT INFORMATION
  Report Type: Spontaneous
  Country: US (occurrence: US)
  Receive Date: 20221101
  Receipt Date: 20230308
  Transmission Date: 20230417
  Serious: No
  Sender: FDA-Public Use
  Company Number: US-BRISTOL-MYERS SQUIBB COMPANY-2022-129762

PATIENT
  Age: 68 Year
  Sex: Female

DRUGS (2)
  1. REVLIMID [Suspect]
     Active Substance: LENALIDOMIDE
     Indication: Plasma cell myeloma
     Dosage: TAKE 1 CAPSULE (25MG TOTAL) BY MOUTH EVERY DAY ON DAYS 1-14 OF EACH 21 DAY CYCLE OF CHEMOTHERAPY
     Route: 048
     Dates: start: 20220801
  2. REVLIMID [Suspect]
     Active Substance: LENALIDOMIDE
     Route: 048
     Dates: start: 20221116

REACTIONS (2)
  - Off label use [Unknown]
  - Product distribution issue [Unknown]
